FAERS Safety Report 4958398-1 (Version None)
Quarter: 2006Q1

REPORT INFORMATION
  Report Type: 
  Country: None (occurrence: None)
  Receive Date: 20060201
  Receipt Date: 20051121
  Transmission Date: 20060701
  Serious: No
  Sender: FDA-Public Use
  Company Number: 2005PV004695

PATIENT
  Age: 54 Year
  Sex: Male
  Weight: 136.0791 kg

DRUGS (4)
  1. BYETTA [Suspect]
     Indication: DIABETES MELLITUS NON-INSULIN-DEPENDENT
     Dosage: 5 MCG;BID;SC
     Route: 058
     Dates: start: 20051111
  2. GLUCOPHAGE [Concomitant]
  3. ACTOS [Concomitant]
  4. LANTUS [Concomitant]

REACTIONS (13)
  - ABNORMAL FAECES [None]
  - ASTHENIA [None]
  - BLOOD GLUCOSE DECREASED [None]
  - DECREASED APPETITE [None]
  - DIARRHOEA [None]
  - FATIGUE [None]
  - INFLUENZA [None]
  - MUSCULOSKELETAL STIFFNESS [None]
  - NAUSEA [None]
  - POLLAKIURIA [None]
  - PRODUCTIVE COUGH [None]
  - SINUSITIS [None]
  - SKIN ULCER [None]
